FAERS Safety Report 4611050-4 (Version None)
Quarter: 2005Q1

REPORT INFORMATION
  Report Type: 
  Country: None (occurrence: None)
  Receive Date: 20050316
  Receipt Date: 20050316
  Transmission Date: 20050727
  Serious: Yes (Life-Threatening)
  Sender: FDA-Public Use
  Company Number: None

PATIENT
  Age: 70 Year
  Sex: Male
  Weight: 66.2252 kg

DRUGS (6)
  1. SPIRONOLACTONE [Suspect]
     Dosage: 25 MG PO QD
     Route: 048
  2. ZESTRIL [Suspect]
     Indication: HYPERTENSION
     Dosage: 20 MG PO QD
     Route: 048
  3. FUROSEMIDE [Concomitant]
  4. ASPIRIN [Concomitant]
  5. METOPROLOL SUCCINATE [Concomitant]
  6. SIMVASTATIN [Concomitant]

REACTIONS (9)
  - ASTHENIA [None]
  - DIARRHOEA [None]
  - ELECTROCARDIOGRAM T WAVE PEAKED [None]
  - HAEMODIALYSIS [None]
  - HYPERKALAEMIA [None]
  - METABOLIC ACIDOSIS [None]
  - NAUSEA [None]
  - RENAL FAILURE ACUTE [None]
  - VOMITING [None]
